FAERS Safety Report 17541601 (Version 1)
Quarter: 2020Q1

REPORT INFORMATION
  Report Type: Spontaneous
  Country: FR (occurrence: FR)
  Receive Date: 20200313
  Receipt Date: 20200313
  Transmission Date: 20200409
  Serious: Yes (Life-Threatening, Hospitalization, Other)
  Sender: FDA-Public Use
  Company Number: NVSC2020FR068851

PATIENT
  Age: 78 Year
  Sex: Female
  Weight: 45 kg

DRUGS (2)
  1. FLUDARABINE PHOSPHATE. [Suspect]
     Active Substance: FLUDARABINE PHOSPHATE
     Indication: CHRONIC LYMPHOCYTIC LEUKAEMIA
     Dosage: 60 MG, QD (60 MG/D, CYCLE X 5D)
     Route: 048
     Dates: start: 20070508, end: 20070511
  2. CYCLOPHOSPHAMIDE. [Concomitant]
     Active Substance: CYCLOPHOSPHAMIDE
     Indication: CHRONIC LYMPHOCYTIC LEUKAEMIA
     Dosage: 300 MG, QD (300 MG, CYCLE X 5D)
     Route: 048
     Dates: start: 20070508, end: 20070511

REACTIONS (10)
  - Vomiting [Recovered/Resolved]
  - Hyponatraemia [Recovering/Resolving]
  - Quadriparesis [Recovering/Resolving]
  - Lymphopenia [Not Recovered/Not Resolved]
  - Myalgia [Unknown]
  - Anaemia macrocytic [Recovering/Resolving]
  - Muscle spasms [Unknown]
  - Blood pressure systolic increased [Unknown]
  - Respiratory disorder [Recovering/Resolving]
  - Asthenia [Recovering/Resolving]

NARRATIVE: CASE EVENT DATE: 20070509
